FAERS Safety Report 9413400 (Version 1)
Quarter: 2013Q3

REPORT INFORMATION
  Report Type: Spontaneous
  Country: US (occurrence: None)
  Receive Date: 20130709
  Receipt Date: 20130709
  Transmission Date: 20140515
  Serious: Yes (Other)
  Sender: FDA-Public Use
  Company Number: 2013P1005579

PATIENT
  Age: 47 Year
  Sex: Female
  Weight: 78.5 kg

DRUGS (22)
  1. INFUMORPH [Suspect]
     Indication: POST HERPETIC NEURALGIA
     Route: 037
     Dates: end: 2006
  2. INFUMORPH [Suspect]
     Indication: LUMBAR RADICULOPATHY
     Route: 037
     Dates: end: 2006
  3. INFUMORPH [Suspect]
     Indication: BACK PAIN
     Route: 037
     Dates: end: 2006
  4. BACLOFEN [Suspect]
     Indication: LUMBAR RADICULOPATHY
     Route: 037
     Dates: end: 2006
  5. BACLOFEN [Suspect]
     Indication: POST HERPETIC NEURALGIA
     Route: 037
     Dates: end: 2006
  6. FENTANYL [Suspect]
     Indication: LUMBAR RADICULOPATHY
     Dates: end: 2006
  7. FENTANYL [Suspect]
     Indication: POST HERPETIC NEURALGIA
     Dates: end: 2006
  8. OPANA ER [Concomitant]
  9. LYRICA [Concomitant]
  10. VALTREX [Concomitant]
  11. AMBIEN [Concomitant]
  12. METOPROLOL [Concomitant]
  13. PHENERGAN [Concomitant]
  14. HYDROCODONE [Concomitant]
  15. XANAX [Concomitant]
  16. REGLAN [Concomitant]
  17. DULCOLAX [Concomitant]
  18. AMITRIPTYLINE HCL [Concomitant]
  19. LIDODERM PATCH [Concomitant]
  20. UNSPECIFIED MEDICATION [Concomitant]
  21. IBUPROFEN [Concomitant]
  22. ROBAXIN [Concomitant]

REACTIONS (11)
  - Anxiety [None]
  - Sedation [None]
  - Somnolence [None]
  - Overdose [None]
  - Chest pain [None]
  - Unresponsive to stimuli [None]
  - Hyperhidrosis [None]
  - Blood albumin decreased [None]
  - Acute respiratory failure [None]
  - Hypertension [None]
  - Malnutrition [None]
